FAERS Safety Report 6431586-3 (Version None)
Quarter: 2009Q4

REPORT INFORMATION
  Report Type: 
  Country: None (occurrence: None)
  Receive Date: 20091106
  Receipt Date: 20091027
  Transmission Date: 20100525
  Serious: Yes (Hospitalization)
  Sender: FDA-Public Use
  Company Number: GB-AMGEN-US369493

PATIENT
  Sex: Male

DRUGS (7)
  1. ENBREL [Suspect]
     Indication: RHEUMATOID ARTHRITIS
     Route: 058
     Dates: start: 20070101, end: 20081001
  2. LEFLUNOMIDE [Suspect]
     Indication: RHEUMATOID ARTHRITIS
     Route: 048
     Dates: start: 20080101
  3. HYPURIN NEUTRAL [Concomitant]
     Dosage: 20 UNITS, FREQUENCY UNKNOWN
     Route: 058
  4. ALENDRONATE SODIUM [Concomitant]
     Route: 048
  5. METFORMIN HYDROCHLORIDE [Concomitant]
     Dosage: 1.5MG, FREQUENCY UNKNOWN
     Route: 048
  6. IRBESARTAN [Concomitant]
     Dosage: 150MG, FREQUENCY UNKNOWN
     Route: 048
  7. HYPURIN ISOPHANE [Concomitant]
     Dosage: 22 UNITS, FREQUENCY UNKNOWN
     Route: 058

REACTIONS (3)
  - CONCOMITANT DISEASE PROGRESSION [None]
  - MALAISE [None]
  - TYPE 1 DIABETES MELLITUS [None]
